FAERS Safety Report 4677699-8 (Version None)
Quarter: 2005Q2

REPORT INFORMATION
  Report Type: 
  Country: None (occurrence: None)
  Receive Date: 20050527
  Receipt Date: 20050518
  Transmission Date: 20051028
  Serious: Yes (Other)
  Sender: FDA-Public Use
  Company Number: ENTC2005-0139

PATIENT
  Age: 72 Year
  Sex: Female

DRUGS (1)
  1. STALEVO 100 [Suspect]
     Route: 048

REACTIONS (1)
  - CARDIAC FAILURE [None]
